FAERS Safety Report 15125772 (Version 2)
Quarter: 2018Q3

REPORT INFORMATION
  Report Type: Report from Study
  Country: NL (occurrence: NL)
  Receive Date: 20180710
  Receipt Date: 20180723
  Transmission Date: 20181010
  Serious: Yes (Hospitalization)
  Sender: FDA-Public Use
  Company Number: NL-TAKEDA-2017TUS000859

PATIENT
  Age: 26 Year
  Sex: Female
  Weight: 88.5 kg

DRUGS (6)
  1. BLINDED PLACEBO [Suspect]
     Active Substance: INVESTIGATIONAL PRODUCT
     Indication: CROHN^S DISEASE
     Dosage: UNK
     Route: 042
     Dates: start: 20170110, end: 20170425
  2. BLINDED VEDOLIZUMAB [Suspect]
     Active Substance: VEDOLIZUMAB
     Indication: CROHN^S DISEASE
     Dosage: UNK
     Route: 042
     Dates: start: 20170110, end: 20170425
  3. ESOMEPRAZOL                        /01479301/ [Concomitant]
     Active Substance: ESOMEPRAZOLE
     Indication: PROPHYLAXIS
     Dosage: 20 MG, QD
     Route: 048
     Dates: start: 20161230, end: 20170420
  4. CALCICHEW D3 [Concomitant]
     Active Substance: CALCIUM\CHOLECALCIFEROL
     Dosage: 500/10 MG, QD
     Route: 048
     Dates: start: 20161028
  5. FERROFUMARAAT [Concomitant]
     Indication: PROPHYLAXIS
     Dosage: 200 MG, QD
     Route: 048
     Dates: start: 20161202, end: 20170302
  6. PREDNISON [Concomitant]
     Active Substance: PREDNISONE
     Indication: CROHN^S DISEASE
     Dosage: 15 MG, QD
     Route: 048
     Dates: start: 20161220, end: 20170131

REACTIONS (1)
  - Anal fissure [Recovered/Resolved]

NARRATIVE: CASE EVENT DATE: 20170107
